FAERS Safety Report 7728879-6 (Version None)
Quarter: 2011Q3

REPORT INFORMATION
  Report Type: 
  Country: None (occurrence: None)
  Receive Date: 20110831
  Receipt Date: 20110825
  Transmission Date: 20111222
  Serious: Yes (Life-Threatening)
  Sender: FDA-Public Use
  Company Number: 122108

PATIENT
  Age: 34 Year
  Sex: Female

DRUGS (1)
  1. CERUBIDINE [Suspect]
     Indication: ACUTE MYELOID LEUKAEMIA
     Dosage: 90MG, 1X/DAY, IV
     Route: 042
     Dates: start: 20090217, end: 20090219

REACTIONS (3)
  - APLASIA [None]
  - GASTROINTESTINAL HAEMORRHAGE [None]
  - ANGIODYSPLASIA [None]
